FAERS Safety Report 8598355-X (Version None)
Quarter: 2012Q3

REPORT INFORMATION
  Report Type: 
  Country: None (occurrence: None)
  Receive Date: 20120816
  Receipt Date: 20120813
  Transmission Date: 20120928
  Serious: Yes (Disabling)
  Sender: FDA-Public Use
  Company Number: US-ELI_LILLY_AND_COMPANY-US201207008163

PATIENT
  Age: 82 Year
  Sex: Female

DRUGS (1)
  1. HUMULIN N [Suspect]
     Dosage: UNK, UNKNOWN

REACTIONS (3)
  - ABASIA [None]
  - ARTHRITIS [None]
  - VISUAL IMPAIRMENT [None]
